FAERS Safety Report 6193279-X (Version None)
Quarter: 2009Q2

REPORT INFORMATION
  Report Type: 
  Country: None (occurrence: None)
  Receive Date: 20090518
  Receipt Date: 20090511
  Transmission Date: 20091009
  Serious: Yes (Other)
  Sender: FDA-Public Use
  Company Number: B0574309A

PATIENT
  Sex: Female

DRUGS (2)
  1. LAMICTAL [Suspect]
     Indication: DEPRESSION
     Route: 065
     Dates: start: 20081201
  2. CONTRACEPTIVE PILL [Concomitant]

REACTIONS (3)
  - BLOOD CORTISOL INCREASED [None]
  - HYPOTHYROIDISM [None]
  - INFECTION [None]
